FAERS Safety Report 12638300 (Version 1)
Quarter: 2016Q3

REPORT INFORMATION
  Report Type: Spontaneous
  Country: US (occurrence: US)
  Receive Date: 20160809
  Receipt Date: 20160809
  Transmission Date: 20161109
  Serious: No
  Sender: FDA-Public Use
  Company Number: US-SA-2016SA091933

PATIENT
  Age: 55 Year
  Sex: Female

DRUGS (7)
  1. OPANA [Concomitant]
     Active Substance: OXYMORPHONE HYDROCHLORIDE
  2. PRALUENT [Suspect]
     Active Substance: ALIROCUMAB
     Indication: HYPERCHOLESTEROLAEMIA
     Route: 058
     Dates: start: 20160401
  3. ALIROCUMAB PREFILLED PEN [Concomitant]
     Active Substance: ALIROCUMAB
     Dates: start: 20160401
  4. ESTROPIPATE. [Concomitant]
     Active Substance: ESTROPIPATE
  5. METHYLPREDNISOLONE. [Concomitant]
     Active Substance: METHYLPREDNISOLONE
  6. ZOLPIDEM [Concomitant]
     Active Substance: ZOLPIDEM\ZOLPIDEM TARTRATE
  7. OXYMORPHONE [Concomitant]
     Active Substance: OXYMORPHONE

REACTIONS (2)
  - Dry skin [Unknown]
  - Erythema [Unknown]

NARRATIVE: CASE EVENT DATE: 20160420
